FAERS Safety Report 10255676 (Version 2)
Quarter: 2014Q3

REPORT INFORMATION
  Report Type: Spontaneous
  Country: JP (occurrence: JP)
  Receive Date: 20140624
  Receipt Date: 20140709
  Transmission Date: 20150326
  Serious: Yes (Hospitalization)
  Sender: FDA-Public Use
  Company Number: PHHY2014JP077171

PATIENT
  Age: 51 Year
  Sex: Male

DRUGS (2)
  1. ISCOTIN [Interacting]
     Active Substance: ISONIAZID
     Indication: ANTIBIOTIC PROPHYLAXIS
  2. LAMISIL [Suspect]
     Active Substance: TERBINAFINE HYDROCHLORIDE
     Indication: ANTIBIOTIC PROPHYLAXIS
     Dosage: 125 MG, DAILY
     Route: 048

REACTIONS (3)
  - Vomiting [Unknown]
  - Nausea [Unknown]
  - Drug interaction [Unknown]

NARRATIVE: CASE EVENT DATE: 201406
